FAERS Safety Report 9759652 (Version 2)
Quarter: 2013Q4

REPORT INFORMATION
  Report Type: Spontaneous
  Country: US (occurrence: US)
  Receive Date: 20131216
  Receipt Date: 20131216
  Transmission Date: 20140711
  Serious: No
  Sender: FDA-Public Use
  Company Number: US-GILEAD-2010-0028118

PATIENT
  Sex: Female

DRUGS (15)
  1. LETAIRIS [Suspect]
     Indication: PULMONARY ARTERIAL HYPERTENSION
     Route: 048
     Dates: start: 20100223
  2. TORSEMIDE [Concomitant]
  3. METOPROLOL ER [Concomitant]
  4. AMLODIPINE [Concomitant]
  5. COUMADINE [Concomitant]
  6. LISINOPRIL [Concomitant]
  7. LOVASTATIN [Concomitant]
  8. XALATAN [Concomitant]
  9. ULTRAM [Concomitant]
  10. DARVOCET [Concomitant]
  11. HYDROCODONE /APAP [Concomitant]
  12. CALCIUM [Concomitant]
  13. VITAMIN C [Concomitant]
  14. DOXEPIN [Concomitant]
  15. K-DUR [Concomitant]

REACTIONS (2)
  - Migraine [Not Recovered/Not Resolved]
  - Fatigue [Not Recovered/Not Resolved]
